FAERS Safety Report 18393348 (Version 6)
Quarter: 2021Q1

REPORT INFORMATION
  Report Type: Report from Study
  Country: US (occurrence: US)
  Receive Date: 20201016
  Receipt Date: 20210111
  Transmission Date: 20210419
  Serious: No
  Sender: FDA-Public Use
  Company Number: NVSC2020US277899

PATIENT
  Sex: Male

DRUGS (1)
  1. BEOVU [Suspect]
     Active Substance: BROLUCIZUMAB-DBLL
     Indication: NEOVASCULAR AGE-RELATED MACULAR DEGENERATION
     Dosage: UNK (RIGHT EYE)
     Route: 047
     Dates: start: 20201012

REACTIONS (6)
  - Photopsia [Unknown]
  - Eye pain [Unknown]
  - Diplopia [Recovering/Resolving]
  - Vitreous floaters [Recovered/Resolved]
  - Ocular hyperaemia [Recovering/Resolving]
  - Product storage error [Unknown]
